FAERS Safety Report 8108445-3 (Version None)
Quarter: 2012Q1

REPORT INFORMATION
  Report Type: 
  Country: None (occurrence: None)
  Receive Date: 20120202
  Receipt Date: 20120131
  Transmission Date: 20120608
  Serious: Yes (Other)
  Sender: FDA-Public Use
  Company Number: US-PFIZER INC-2011308110

PATIENT
  Sex: Female
  Weight: 78 kg

DRUGS (3)
  1. OXYCODONE [Concomitant]
     Indication: PAIN
     Dosage: 18 MG, 3X/DAY
  2. CHANTIX [Suspect]
     Indication: SMOKING CESSATION THERAPY
     Dosage: 0.5 MG, DAILY
     Route: 048
     Dates: start: 20111205, end: 20111218
  3. MORPHINE SULFATE [Interacting]
     Indication: PAIN
     Dosage: 12 MG, 4X/DAY
     Dates: start: 20110101, end: 20111201

REACTIONS (3)
  - DRUG INTERACTION [None]
  - DEPRESSION [None]
  - DRUG INEFFECTIVE [None]
